FAERS Safety Report 14577373 (Version 1)
Quarter: 2018Q1

REPORT INFORMATION
  Report Type: Spontaneous
  Country: US (occurrence: US)
  Receive Date: 20180226
  Receipt Date: 20180226
  Transmission Date: 20180509
  Serious: Yes (Hospitalization)
  Sender: FDA-Public Use
  Company Number: None

PATIENT
  Age: 70 Year
  Sex: Male

DRUGS (2)
  1. LONSURF [Suspect]
     Active Substance: TIPIRACIL HYDROCHLORIDE\TRIFLURIDINE
     Indication: NEOPLASM MALIGNANT
     Route: 048
     Dates: start: 20160317
  2. DILAUDID, LOVENOX, BENZONATATE [Concomitant]

REACTIONS (3)
  - Drug dose omission [None]
  - Hip fracture [None]
  - Therapy cessation [None]

NARRATIVE: CASE EVENT DATE: 20180226
